FAERS Safety Report 8622506-1 (Version None)
Quarter: 2012Q3

REPORT INFORMATION
  Report Type: 
  Country: None (occurrence: None)
  Receive Date: 20120827
  Receipt Date: 20120823
  Transmission Date: 20120928
  Serious: No
  Sender: FDA-Public Use
  Company Number: US-PFIZER INC-2012207686

PATIENT
  Age: 46 Year

DRUGS (2)
  1. PROCARDIA [Suspect]
     Dosage: UNK
  2. DILTIAZEM HCL [Suspect]
     Dosage: UNK

REACTIONS (2)
  - DRUG HYPERSENSITIVITY [None]
  - ERECTILE DYSFUNCTION [None]
